FAERS Safety Report 25792780 (Version 1)
Quarter: 2025Q3

REPORT INFORMATION
  Report Type: Spontaneous
  Country: US (occurrence: US)
  Receive Date: 20250911
  Receipt Date: 20250911
  Transmission Date: 20251021
  Serious: Yes (Other)
  Sender: ADMA BIOLOGICS
  Company Number: US-ADMA BIOLOGICS INC.-US-2025ADM000262

PATIENT
  Age: 72 Year
  Sex: Female

DRUGS (1)
  1. ASCENIV [Suspect]
     Active Substance: HUMAN IMMUNOGLOBULIN G
     Indication: Product used for unknown indication
     Route: 042
     Dates: start: 20250826

REACTIONS (5)
  - Urticaria [Unknown]
  - Oesophageal spasm [Unknown]
  - Rash [Unknown]
  - Dyspnoea [Unknown]
  - Bronchospasm [Unknown]

NARRATIVE: CASE EVENT DATE: 20250826
